FAERS Safety Report 4381877-5 (Version None)
Quarter: 2004Q2

REPORT INFORMATION
  Report Type: 
  Country: None (occurrence: None)
  Receive Date: 20040610
  Receipt Date: 20040302
  Transmission Date: 20050107
  Serious: No
  Sender: FDA-Public Use
  Company Number: A03200400652

PATIENT
  Age: 55 Year
  Sex: Female
  Weight: 93.8946 kg

DRUGS (5)
  1. ELOXATIN [Suspect]
     Indication: COLON CANCER
     Dosage: 170 MG Q2W - INTRAVENOUS NOS
     Route: 042
     Dates: start: 20040223, end: 20040223
  2. FLUOROUCIL [Concomitant]
  3. LEUCOVORIN [Concomitant]
  4. DOLASETRON MESILATE [Concomitant]
  5. DEXAMETHASONE TAB [Concomitant]

REACTIONS (3)
  - ABDOMINAL PAIN [None]
  - BURNING SENSATION [None]
  - FEELING HOT [None]
